FAERS Safety Report 4850781-8 (Version None)
Quarter: 2005Q4

REPORT INFORMATION
  Report Type: 
  Country: None (occurrence: None)
  Receive Date: 20051212
  Receipt Date: 20051130
  Transmission Date: 20060501
  Serious: Yes (Hospitalization)
  Sender: FDA-Public Use
  Company Number: NZ-AVENTIS-200514766EU

PATIENT
  Age: 77 Year
  Sex: Male

DRUGS (2)
  1. CLEXANE [Suspect]
     Indication: ACUTE MYOCARDIAL INFARCTION
  2. ASPIRIN [Concomitant]
     Indication: ACUTE MYOCARDIAL INFARCTION

REACTIONS (3)
  - ASTHENIA [None]
  - CEREBRAL INFARCTION [None]
  - SPINAL HAEMATOMA [None]
